FAERS Safety Report 17072743 (Version 1)
Quarter: 2019Q4

REPORT INFORMATION
  Report Type: Spontaneous
  Country: CA (occurrence: CA)
  Receive Date: 20191125
  Receipt Date: 20191125
  Transmission Date: 20200122
  Serious: Yes (Other)
  Sender: FDA-Public Use
  Company Number: CA-ALLERGAN-1947094US

PATIENT
  Sex: Female
  Weight: 65 kg

DRUGS (1)
  1. BOTOX [Suspect]
     Active Substance: ONABOTULINUMTOXINA
     Indication: MIGRAINE PROPHYLAXIS
     Dosage: 100 UNITS, SINGLE Q3MONTHS
     Route: 030

REACTIONS (4)
  - Burning sensation [Recovering/Resolving]
  - Neck pain [Recovering/Resolving]
  - Pain [Unknown]
  - Injection site pain [Recovering/Resolving]
